FAERS Safety Report 18087375 (Version 3)
Quarter: 2020Q4

REPORT INFORMATION
  Report Type: Spontaneous
  Country: US (occurrence: US)
  Receive Date: 20200729
  Receipt Date: 20201126
  Transmission Date: 20210113
  Serious: No
  Sender: FDA-Public Use
  Company Number: US-GLAXOSMITHKLINE-US2020AMR144158

PATIENT
  Sex: Female

DRUGS (3)
  1. ZEJULA [Suspect]
     Active Substance: NIRAPARIB
     Dosage: 300 MG, QD
     Route: 048
  2. ZEJULA [Suspect]
     Active Substance: NIRAPARIB
     Dosage: 300 MG, QD
  3. ZEJULA [Suspect]
     Active Substance: NIRAPARIB
     Indication: OVARIAN CANCER
     Dosage: 300 MG, QD
     Route: 048
     Dates: start: 20200605

REACTIONS (8)
  - Carbohydrate antigen 125 increased [Not Recovered/Not Resolved]
  - Abdominal pain [Unknown]
  - Nausea [Unknown]
  - Product dose omission issue [Unknown]
  - Product use issue [Unknown]
  - Rash macular [Unknown]
  - Abdominal pain upper [Unknown]
  - Diarrhoea [Unknown]
